FAERS Safety Report 5064363-9 (Version None)
Quarter: 2006Q3

REPORT INFORMATION
  Report Type: 
  Country: None (occurrence: None)
  Receive Date: 20060706
  Receipt Date: 20060410
  Transmission Date: 20061208
  Serious: No
  Sender: FDA-Public Use
  Company Number: 200512954BWH

PATIENT
  Age: 64 Year
  Sex: Male
  Weight: 88.905 kg

DRUGS (4)
  1. LEVITRA [Suspect]
     Indication: ERECTILE DYSFUNCTION
     Dosage: 20 MG, PRN, ORAL
     Route: 048
  2. BENAZEPRIL HYDROCHLORIDE [Concomitant]
  3. VYTORIN [Concomitant]
  4. AVANDAMET [Concomitant]

REACTIONS (1)
  - EJACULATION FAILURE [None]
